FAERS Safety Report 5368795-0 (Version None)
Quarter: 2007Q2

REPORT INFORMATION
  Report Type: 
  Country: None (occurrence: None)
  Receive Date: 20070625
  Receipt Date: 20070614
  Transmission Date: 20071010
  Serious: Yes (Disabling)
  Sender: FDA-Public Use
  Company Number: US-KINGPHARMUSA00001-K200700738

PATIENT

DRUGS (6)
  1. ALTACE [Suspect]
     Indication: ANGINA PECTORIS
     Dosage: 10 MG, QD
     Route: 048
     Dates: start: 20050824
  2. AMLODIPINE [Suspect]
     Indication: ANGINA PECTORIS
     Dosage: 10 MG, QD
     Route: 048
     Dates: start: 20061120
  3. ATENOLOL [Suspect]
     Indication: ANGINA PECTORIS
     Dosage: 100 MG, QD
     Route: 048
     Dates: start: 20060302
  4. GLICAZIDE [Suspect]
     Indication: DIABETES MELLITUS
     Dosage: 80 MG, UNK
     Route: 048
     Dates: start: 20050620
  5. GLUCOPHAGE [Suspect]
     Indication: DIABETES MELLITUS
     Dosage: 1000 MG, QD
     Route: 048
     Dates: start: 20061120
  6. SIMVASTATIN [Concomitant]
     Indication: MYOCARDIAL ISCHAEMIA
     Dosage: 20 MG, UNK
     Route: 048
     Dates: start: 20050714

REACTIONS (2)
  - JEALOUS DELUSION [None]
  - SLEEP TERROR [None]
